FAERS Safety Report 17748853 (Version 2)
Quarter: 2020Q2

REPORT INFORMATION
  Report Type: Spontaneous
  Country: US (occurrence: US)
  Receive Date: 20200506
  Receipt Date: 20200617
  Transmission Date: 20200714
  Serious: Yes (Other)
  Sender: FDA-Public Use
  Company Number: US-BEH-2020116889

PATIENT
  Age: 5 Year
  Sex: Male
  Weight: 21.9 kg

DRUGS (1)
  1. HIZENTRA [Suspect]
     Active Substance: HUMAN IMMUNOGLOBULIN G
     Indication: PRIMARY IMMUNODEFICIENCY SYNDROME
     Dosage: 100 MILLIGRAM/KILOGRAM, QW
     Route: 065
     Dates: start: 202004, end: 202005

REACTIONS (2)
  - Pharyngeal swelling [Recovered/Resolved]
  - Feeding disorder [Recovered/Resolved]

NARRATIVE: CASE EVENT DATE: 20200419
